FAERS Safety Report 5931350-5 (Version None)
Quarter: 2008Q4

REPORT INFORMATION
  Report Type: 
  Country: None (occurrence: None)
  Receive Date: 20081027
  Receipt Date: 20081022
  Transmission Date: 20090506
  Serious: Yes (Death, Life-Threatening)
  Sender: FDA-Public Use
  Company Number: JP-ABBOTT-08P-087-0483578-00

PATIENT
  Sex: Male

DRUGS (6)
  1. CLARITHROMYCIN [Suspect]
     Indication: PNEUMONIA
     Dosage: 400 MG DAILY
     Route: 048
     Dates: start: 20081007, end: 20081014
  2. VORICONAZOLE [Concomitant]
     Indication: PNEUMONIA
     Dosage: 300 MG DAILY
     Route: 042
     Dates: start: 20081007, end: 20081014
  3. FUROSEMIDE [Concomitant]
     Indication: CARDIAC FAILURE
     Dosage: 20 MG DAILY
     Route: 048
     Dates: start: 20081009, end: 20081014
  4. GLYCYRON [Concomitant]
     Indication: CHOLECYSTECTOMY
     Dosage: 3 TABLETS DAILY
     Route: 048
     Dates: start: 20081001, end: 20081014
  5. THEOPHYLLINE [Concomitant]
     Indication: ASTHMA
     Dosage: 200 MG DAILY
     Route: 048
     Dates: start: 20080110, end: 20081014
  6. DOPAMINE HYDROCHLORIDE [Concomitant]
     Indication: CARDIAC FAILURE
     Route: 042
     Dates: start: 20081008, end: 20081017

REACTIONS (5)
  - ELECTROCARDIOGRAM QT PROLONGED [None]
  - HYPOKALAEMIA [None]
  - PNEUMONIA [None]
  - TORSADE DE POINTES [None]
  - VENTRICULAR FIBRILLATION [None]
